FAERS Safety Report 14311393 (Version 1)
Quarter: 2017Q4

REPORT INFORMATION
  Report Type: Spontaneous
  Country: US (occurrence: US)
  Receive Date: 20171221
  Receipt Date: 20171221
  Transmission Date: 20180321
  Serious: No
  Sender: FDA-Public Use
  Company Number: US-NOVEN PHARMACEUTICALS, INC.-US2017000961

PATIENT

DRUGS (7)
  1. OMEPRAZOLE. [Concomitant]
     Active Substance: OMEPRAZOLE
  2. MINIVELLE [Suspect]
     Active Substance: ESTRADIOL
     Indication: AFFECT LABILITY
  3. ZANTAC [Concomitant]
     Active Substance: RANITIDINE HYDROCHLORIDE
  4. MINIVELLE [Suspect]
     Active Substance: ESTRADIOL
     Indication: NIGHT SWEATS
  5. MINIVELLE [Suspect]
     Active Substance: ESTRADIOL
     Indication: HOT FLUSH
     Dosage: 0.0375 MG, 2/WK FOR THREE WEEKS AND THEN ONE WEEK OFF
     Route: 062
     Dates: end: 2017
  6. VITAMIN D [Concomitant]
     Active Substance: CHOLECALCIFEROL
  7. PROGESTERONE. [Concomitant]
     Active Substance: PROGESTERONE

REACTIONS (15)
  - Product quality issue [Recovered/Resolved]
  - Drug prescribing error [Unknown]
  - Wrong technique in product usage process [Recovered/Resolved]
  - Drug ineffective [Recovered/Resolved]
  - Hot flush [Not Recovered/Not Resolved]
  - Hyperhidrosis [Not Recovered/Not Resolved]
  - Application site irritation [Not Recovered/Not Resolved]
  - Inappropriate schedule of drug administration [Recovered/Resolved]
  - Application site scar [Not Recovered/Not Resolved]
  - Drug administered at inappropriate site [Recovered/Resolved]
  - Application site burn [Not Recovered/Not Resolved]
  - Therapy cessation [Not Recovered/Not Resolved]
  - Product adhesion issue [Recovered/Resolved]
  - Off label use [Unknown]
  - Application site dermatitis [Recovering/Resolving]

NARRATIVE: CASE EVENT DATE: 2017
